FAERS Safety Report 17045506 (Version 1)
Quarter: 2019Q4

REPORT INFORMATION
  Report Type: Other
  Country: US (occurrence: US)
  Receive Date: 20191118
  Receipt Date: 20191118
  Transmission Date: 20200122
  Serious: No
  Sender: FDA-Public Use
  Company Number: US-LEADIANT BIOSCIENCES INC-2019STPI000294

PATIENT

DRUGS (11)
  1. CYSTARAN [Suspect]
     Active Substance: CYSTEAMINE HYDROCHLORIDE
     Indication: CORNEAL OPACITY CONGENITAL
     Dosage: EVERY WAKING HOUR
     Route: 047
     Dates: start: 20190524
  2. SYNTHROID [Concomitant]
     Active Substance: LEVOTHYROXINE SODIUM
  3. ATENOLOL. [Concomitant]
     Active Substance: ATENOLOL
  4. COZAAR [Concomitant]
     Active Substance: LOSARTAN POTASSIUM
  5. CELLCEPT [Concomitant]
     Active Substance: MYCOPHENOLATE MOFETIL\MYCOPHENOLATE MOFETIL HYDROCHLORIDE
  6. BACTRIM [Concomitant]
     Active Substance: SULFAMETHOXAZOLE\TRIMETHOPRIM
  7. PROGRAF [Concomitant]
     Active Substance: TACROLIMUS
  8. CYSTAGON [Concomitant]
     Active Substance: CYSTEAMINE BITARTRATE
  9. PROCRIT [Concomitant]
     Active Substance: ERYTHROPOIETIN
  10. LASIX [Concomitant]
     Active Substance: FUROSEMIDE
  11. PREDNISONE. [Concomitant]
     Active Substance: PREDNISONE

REACTIONS (2)
  - Ocular hyperaemia [Unknown]
  - Allergic reaction to excipient [Unknown]
